FAERS Safety Report 6841472-2 (Version None)
Quarter: 2010Q3

REPORT INFORMATION
  Report Type: 
  Country: None (occurrence: None)
  Receive Date: 20100714
  Receipt Date: 20070702
  Transmission Date: 20110219
  Serious: No
  Sender: FDA-Public Use
  Company Number: US-PFIZER INC-2007056034

PATIENT
  Sex: Male
  Weight: 70.454 kg

DRUGS (1)
  1. CHANTIX [Suspect]
     Indication: SMOKING CESSATION THERAPY
     Dates: start: 20070615, end: 20070629

REACTIONS (10)
  - ARTHRALGIA [None]
  - CONSTIPATION [None]
  - FEELING COLD [None]
  - FLATULENCE [None]
  - HEADACHE [None]
  - MOOD SWINGS [None]
  - MYALGIA [None]
  - NIGHTMARE [None]
  - PAIN OF SKIN [None]
  - SKIN BURNING SENSATION [None]
